FAERS Safety Report 24612950 (Version 1)
Quarter: 2024Q4

REPORT INFORMATION
  Report Type: Report from Study
  Country: US (occurrence: None)
  Receive Date: 20241113
  Receipt Date: 20241113
  Transmission Date: 20250114
  Serious: Yes (Other)
  Sender: ALEXION PHARMACEUTICALS
  Company Number: US-ASTRAZENECA-202411USA001261US

PATIENT

DRUGS (4)
  1. FASENRA [Suspect]
     Active Substance: BENRALIZUMAB
     Indication: Asthma
     Dosage: WEEK 0,4,8 THEN EVERY
  2. FASENRA [Suspect]
     Active Substance: BENRALIZUMAB
     Dosage: WEEK 0,4,8 THEN EVERY
  3. FASENRA [Suspect]
     Active Substance: BENRALIZUMAB
     Dosage: WEEK 0,4,8 THEN EVERY
  4. FASENRA [Suspect]
     Active Substance: BENRALIZUMAB
     Dosage: WEEK 0,4,8 THEN EVERY

REACTIONS (1)
  - Hepatic cirrhosis [Unknown]
